FAERS Safety Report 6599277-6 (Version None)
Quarter: 2010Q1

REPORT INFORMATION
  Report Type: 
  Country: None (occurrence: None)
  Receive Date: 20100224
  Receipt Date: 20100222
  Transmission Date: 20100710
  Serious: Yes (Death, Other)
  Sender: FDA-Public Use
  Company Number: PHEH2008US07593

PATIENT
  Sex: Male
  Weight: 80.726 kg

DRUGS (9)
  1. ZOMETA [Suspect]
     Dosage: 4 MG IVPB
     Dates: start: 20060501, end: 20070718
  2. CHEMOTHERAPEUTICS NOS [Concomitant]
     Dosage: UNK
     Dates: end: 20070601
  3. CHLORHEXIDINE GLUCONATE [Concomitant]
     Dosage: UNK
  4. ZYDONE [Concomitant]
     Dosage: 400MG-10MG TABLET
     Dates: end: 20070910
  5. AMOXIL ^AYERST LAB^ [Concomitant]
     Dosage: 500 MG / BID
     Route: 048
  6. TAXOTERE [Concomitant]
  7. CASODEX [Concomitant]
     Dosage: 50MG QD
  8. LUPRON [Concomitant]
     Dosage: 22.5 MG 1 DOSE
     Dates: start: 20060407, end: 20060407
  9. DES [Concomitant]
     Dosage: UNK

REACTIONS (36)
  - ACTIVITIES OF DAILY LIVING IMPAIRED [None]
  - ANAEMIA [None]
  - ANHEDONIA [None]
  - ANXIETY [None]
  - BLOOD UREA NITROGEN/CREATININE RATIO INCREASED [None]
  - BONE DISORDER [None]
  - BONE LESION [None]
  - DEATH [None]
  - DEBRIDEMENT [None]
  - DENTAL ALVEOLAR ANOMALY [None]
  - DERMATITIS ALLERGIC [None]
  - DISABILITY [None]
  - EYE SWELLING [None]
  - FISTULA [None]
  - HAEMATURIA [None]
  - HYPOACUSIS [None]
  - IMPAIRED HEALING [None]
  - INJURY [None]
  - INTERNAL FIXATION OF FRACTURE [None]
  - LOOSE TOOTH [None]
  - MENTAL DISORDER [None]
  - METASTASES TO BONE [None]
  - MULTIPLE FRACTURES [None]
  - OCULAR HYPERAEMIA [None]
  - ORAL SURGERY [None]
  - OSTEOMYELITIS [None]
  - OSTEONECROSIS [None]
  - PAIN [None]
  - PERIODONTAL DISEASE [None]
  - PROSTATIC SPECIFIC ANTIGEN INCREASED [None]
  - PURULENCE [None]
  - RESTLESSNESS [None]
  - SEQUESTRECTOMY [None]
  - TINNITUS [None]
  - TOOTH EXTRACTION [None]
  - WEIGHT DECREASED [None]
